FAERS Safety Report 19682651 (Version 3)
Quarter: 2021Q3

REPORT INFORMATION
  Report Type: Report from Study
  Country: AR (occurrence: AR)
  Receive Date: 20210810
  Receipt Date: 20210831
  Transmission Date: 20211014
  Serious: Yes (Hospitalization, Other)
  Sender: FDA-Public Use
  Company Number: AR-TAKEDA-2021TUS049442

PATIENT
  Age: 21 Year
  Sex: Male

DRUGS (1)
  1. VELAGLUCERASE ALFA [Suspect]
     Active Substance: VELAGLUCERASE ALFA
     Indication: GAUCHER^S DISEASE
     Dosage: 60 INTERNATIONAL UNIT/KILOGRAM (10 VIALS), Q2WEEKS
     Route: 042
     Dates: start: 20181203

REACTIONS (2)
  - COVID-19 [Recovered/Resolved]
  - Adverse event [Recovered/Resolved]

NARRATIVE: CASE EVENT DATE: 20210802
